FAERS Safety Report 23723341 (Version 1)
Quarter: 2024Q2

REPORT INFORMATION
  Report Type: Report from Study
  Country: US (occurrence: US)
  Receive Date: 20240409
  Receipt Date: 20240409
  Transmission Date: 20240715
  Serious: Yes (Hospitalization, Other)
  Sender: FDA-Public Use
  Company Number: US-INCYTE CORPORATION-2024IN002518

PATIENT

DRUGS (1)
  1. JAKAFI [Suspect]
     Active Substance: RUXOLITINIB
     Indication: Chronic graft versus host disease
     Dosage: 10 MILLIGRAM ON MONDAY, WEDNESDAY, AND FRIDAY AFTER DIALYSIS
     Route: 048
     Dates: start: 20231017

REACTIONS (2)
  - Transient ischaemic attack [Not Recovered/Not Resolved]
  - Product availability issue [Unknown]
